FAERS Safety Report 5278894-X (Version None)
Quarter: 2007Q1

REPORT INFORMATION
  Report Type: 
  Country: None (occurrence: None)
  Receive Date: 20061208
  Receipt Date: 20050930
  Transmission Date: 20070707
  Serious: Yes (Hospitalization)
  Sender: FDA-Public Use
  Company Number: 2005UW11217

PATIENT
  Age: 52 Year
  Sex: Male

DRUGS (12)
  1. CRESTOR [Suspect]
     Dosage: 10 MG QD PO
     Route: 048
     Dates: start: 20040501
  2. CRESTOR [Suspect]
     Dosage: 5 MG QD PO
     Route: 048
     Dates: end: 20050113
  3. AMARYL [Concomitant]
  4. NAPROSYN [Concomitant]
  5. QUININE [Concomitant]
  6. LEXAPRO [Concomitant]
  7. LISINOPRIL [Concomitant]
  8. NEURONTIN [Concomitant]
  9. ACIPHEX [Concomitant]
  10. GLUCOPHAGE [Concomitant]
  11. AVANDIA [Concomitant]
  12. ADVAIR DISKUS 100/50 [Concomitant]

REACTIONS (1)
  - PANCREATITIS [None]
